FAERS Safety Report 20975918 (Version 1)
Quarter: 2022Q2

REPORT INFORMATION
  Report Type: Spontaneous
  Country: CN (occurrence: CN)
  Receive Date: 20220617
  Receipt Date: 20220617
  Transmission Date: 20220721
  Serious: Yes (Hospitalization)
  Sender: FDA-Public Use
  Company Number: CN-ABBOTT-2022A-1349961

PATIENT
  Sex: Male
  Weight: 74 kg

DRUGS (2)
  1. FENOFIBRATE [Suspect]
     Active Substance: FENOFIBRATE
     Indication: Blood triglycerides decreased
     Route: 048
     Dates: start: 20220520, end: 20220520
  2. ACARBOSE [Concomitant]
     Active Substance: ACARBOSE
     Indication: Blood glucose decreased
     Route: 048
     Dates: start: 20220520, end: 20220520

REACTIONS (2)
  - Flushing [Recovering/Resolving]
  - Pruritus [Recovering/Resolving]

NARRATIVE: CASE EVENT DATE: 20220520
